FAERS Safety Report 4863101-X (Version None)
Quarter: 2005Q4

REPORT INFORMATION
  Report Type: 
  Country: None (occurrence: None)
  Receive Date: 20051130
  Receipt Date: 20050804
  Transmission Date: 20060501
  Serious: No
  Sender: FDA-Public Use
  Company Number: FABR-10890

PATIENT
  Age: 35 Year
  Sex: Male
  Weight: 68 kg

DRUGS (5)
  1. FABRAZYME [Suspect]
     Indication: FABRY'S DISEASE
     Dosage: 70 MG Q2WKS IV
     Route: 042
     Dates: start: 20010520
  2. PARACETAMOL [Concomitant]
  3. HYDROXYZINE [Concomitant]
  4. ENALAPRIL [Concomitant]
  5. STEROIDS [Concomitant]

REACTIONS (6)
  - BLOOD CREATININE INCREASED [None]
  - BLOOD PRESSURE INCREASED [None]
  - BODY TEMPERATURE INCREASED [None]
  - CARDIOMYOPATHY [None]
  - CHILLS [None]
  - PROTEINURIA [None]
